FAERS Safety Report 7920352-5 (Version None)
Quarter: 2011Q4

REPORT INFORMATION
  Report Type: 
  Country: None (occurrence: None)
  Receive Date: 20111117
  Receipt Date: 20111115
  Transmission Date: 20120403
  Serious: No
  Sender: FDA-Public Use
  Company Number: US-B.I. PHARMACEUTICALS,INC./RIDGEFIELD-2011-BP-26253BP

PATIENT
  Sex: Female

DRUGS (3)
  1. SPIRIVA [Suspect]
     Route: 065
     Dates: start: 20111030
  2. GENTAMICIN [Concomitant]
  3. ALLEGRA-D 12 HOUR [Suspect]
     Indication: NASAL CONGESTION
     Route: 048
     Dates: start: 20111030

REACTIONS (2)
  - URTICARIA [None]
  - CHEST DISCOMFORT [None]
